FAERS Safety Report 5690818-X (Version None)
Quarter: 2008Q2

REPORT INFORMATION
  Report Type: 
  Country: None (occurrence: None)
  Receive Date: 20080401
  Receipt Date: 20080321
  Transmission Date: 20081010
  Serious: Yes (Other)
  Sender: FDA-Public Use
  Company Number: B0510888A

PATIENT
  Age: 49 Year
  Sex: Female
  Weight: 48 kg

DRUGS (4)
  1. ARIXTRA [Suspect]
     Indication: THROMBOSIS PROPHYLAXIS
     Dosage: 2.5MG PER DAY
     Route: 058
     Dates: start: 20080203, end: 20080212
  2. LOVENOX [Concomitant]
     Indication: THROMBOSIS PROPHYLAXIS
     Route: 058
     Dates: start: 20080201, end: 20080203
  3. DALFON [Concomitant]
     Indication: VENOUS STASIS
     Route: 065
     Dates: start: 20080213, end: 20080219
  4. COMPRESSION STOCKINGS [Concomitant]
     Route: 065

REACTIONS (5)
  - DYSMENORRHOEA [None]
  - HYPOTENSION [None]
  - MENORRHAGIA [None]
  - MENSTRUAL DISORDER [None]
  - SYNCOPE VASOVAGAL [None]
